FAERS Safety Report 21145875 (Version 1)
Quarter: 2022Q3

REPORT INFORMATION
  Report Type: Spontaneous
  Country: EG (occurrence: EG)
  Receive Date: 20220729
  Receipt Date: 20220729
  Transmission Date: 20221026
  Serious: Yes (Life-Threatening, Disabling, Other)
  Sender: FDA-Public Use
  Company Number: EG-NOVOPROD-941281

PATIENT
  Age: 712 Month
  Sex: Male
  Weight: 75 kg

DRUGS (7)
  1. INSULIN HUMAN [Suspect]
     Active Substance: INSULIN HUMAN
     Indication: Diabetes mellitus
     Dosage: 50 IU, QD (30 U MORNING / 20 U NIGHT)
     Route: 058
     Dates: end: 20220716
  2. ACTRAPID [Concomitant]
     Active Substance: INSULIN HUMAN
     Indication: Diabetes mellitus
     Dosage: 58 IU, QD (16 U BEFORE BREAKFAST, 26 U BEFORE LUNCH, 16 U BEFORE DINNER.)
     Route: 058
     Dates: start: 20220717
  3. TRESIBA [Concomitant]
     Active Substance: INSULIN DEGLUDEC
     Indication: Diabetes mellitus
     Dosage: 20 IU, QD
     Route: 058
     Dates: start: 20220717
  4. ASPIRIN [Concomitant]
     Active Substance: ASPIRIN
     Indication: Thrombosis prophylaxis
     Dosage: 1 DF, QD
     Route: 048
     Dates: start: 1992
  5. ASPIRIN [Concomitant]
     Active Substance: ASPIRIN
     Indication: Thrombosis prophylaxis
     Dosage: 1 DF, QD
     Route: 048
     Dates: start: 2015
  6. GAPTIN [Concomitant]
     Indication: Diabetic neuropathy
     Dosage: 1 DF, BID
     Route: 048
     Dates: start: 202108
  7. GAPTIN [Concomitant]
     Indication: Cardiac disorder

REACTIONS (4)
  - Hemiplegia [Not Recovered/Not Resolved]
  - Hyperglycaemia [Unknown]
  - Arthropathy [Unknown]
  - Intervertebral disc protrusion [Unknown]

NARRATIVE: CASE EVENT DATE: 20150701
